FAERS Safety Report 7982837-5 (Version None)
Quarter: 2011Q4

REPORT INFORMATION
  Report Type: 
  Country: None (occurrence: None)
  Receive Date: 20111215
  Receipt Date: 20111208
  Transmission Date: 20120403
  Serious: Yes (Hospitalization)
  Sender: FDA-Public Use
  Company Number: US-AMGEN-USASP2011065380

PATIENT
  Age: 74 Year
  Sex: Female

DRUGS (4)
  1. STELARA [Concomitant]
     Dosage: UNK
  2. PLAQUENIL [Concomitant]
     Dosage: UNK
     Dates: start: 20110401
  3. ENBREL [Suspect]
     Indication: PSORIASIS
     Dosage: UNK
     Dates: start: 20051101, end: 20091201
  4. REMICADE [Concomitant]
     Dosage: UNK

REACTIONS (3)
  - SYSTEMIC LUPUS ERYTHEMATOSUS [None]
  - MOBILITY DECREASED [None]
  - PSORIASIS [None]
